FAERS Safety Report 10497664 (Version 2)
Quarter: 2015Q3

REPORT INFORMATION
  Report Type: Spontaneous
  Country: US (occurrence: US)
  Receive Date: 20141006
  Receipt Date: 20150923
  Transmission Date: 20151125
  Serious: Yes (Hospitalization)
  Sender: FDA-Public Use
  Company Number: US-PFIZER INC-2014270071

PATIENT
  Age: 84 Year
  Sex: Male
  Weight: 68 kg

DRUGS (7)
  1. FLOMAX [Concomitant]
     Active Substance: TAMSULOSIN HYDROCHLORIDE
     Dosage: UNK
  2. CLONIDINE. [Concomitant]
     Active Substance: CLONIDINE
     Dosage: UNK
     Dates: end: 201505
  3. SUTENT [Suspect]
     Active Substance: SUNITINIB MALATE
     Indication: RENAL CELL CARCINOMA
     Dosage: 37 MG, UNK
     Route: 048
     Dates: start: 2014
  4. CARVEDILOL. [Concomitant]
     Active Substance: CARVEDILOL
     Dosage: UNK
  5. LASIX [Concomitant]
     Active Substance: FUROSEMIDE
     Dosage: CYCLIC (3 YRS ON AND OFF)
  6. SUTENT [Suspect]
     Active Substance: SUNITINIB MALATE
     Dosage: 50 MG, 1X/DAY
     Route: 048
     Dates: start: 201403, end: 201506
  7. ASPIRIN. [Concomitant]
     Active Substance: ASPIRIN
     Dosage: 81 MG, UNK

REACTIONS (10)
  - Contusion [Unknown]
  - Fatigue [Unknown]
  - Hyperaesthesia [Not Recovered/Not Resolved]
  - Skin haemorrhage [Recovered/Resolved]
  - Localised infection [Recovered/Resolved]
  - Impaired healing [Recovered/Resolved]
  - Skin lesion [Recovered/Resolved]
  - Fluid retention [Unknown]
  - Cardiac failure congestive [Unknown]
  - Alopecia [Unknown]

NARRATIVE: CASE EVENT DATE: 201504
